FAERS Safety Report 6722791-7 (Version None)
Quarter: 2010Q2

REPORT INFORMATION
  Report Type: 
  Country: None (occurrence: None)
  Receive Date: 20100512
  Receipt Date: 20100512
  Transmission Date: 20101027
  Serious: No
  Sender: FDA-Public Use
  Company Number: None

PATIENT
  Sex: Female
  Weight: 68.49 kg

DRUGS (1)
  1. CARBOPLATIN [Suspect]
     Dosage: 923.5 MG
     Dates: end: 20100407

REACTIONS (1)
  - NEUTROPHIL COUNT DECREASED [None]
